FAERS Safety Report 6267416-2 (Version None)
Quarter: 2009Q3

REPORT INFORMATION
  Report Type: 
  Country: None (occurrence: None)
  Receive Date: 20090714
  Receipt Date: 20090702
  Transmission Date: 20100115
  Serious: Yes (Other)
  Sender: FDA-Public Use
  Company Number: DE-PFIZER INC-2009224642

PATIENT

DRUGS (1)
  1. VFEND [Suspect]
     Route: 048

REACTIONS (1)
  - CHOKING [None]
